FAERS Safety Report 26010868 (Version 1)
Quarter: 2025Q4

REPORT INFORMATION
  Report Type: Spontaneous
  Country: EU (occurrence: EU)
  Receive Date: 20251107
  Receipt Date: 20251107
  Transmission Date: 20260117
  Serious: Yes (Life-Threatening, Hospitalization, Congenital Anomaly, Other)
  Sender: RANBAXY
  Company Number: None

PATIENT
  Sex: Male
  Weight: 2.84 kg

DRUGS (3)
  1. SERTRALINE [Suspect]
     Active Substance: SERTRALINE HYDROCHLORIDE
     Indication: Anxiety disorder
     Dosage: 0.5 DOSAGE FORM, DAILY, MOTHER^S DOSE: DAILY DOSE: 0.5 DF EVERY 1 DAY
     Route: 064
  2. INSULIN LISPRO [Suspect]
     Active Substance: INSULIN LISPRO
     Indication: Type 2 diabetes mellitus
     Dosage: MOTHER^S DOSE: 0-9-9-0
     Route: 064
  3. PROTAPHANE [Suspect]
     Active Substance: INSULIN HUMAN
     Indication: Type 2 diabetes mellitus
     Dosage: MOTHER^S DOSE: 0-2-24
     Route: 064

REACTIONS (5)
  - Congenital multiplex arthrogryposis [Unknown]
  - Talipes [Unknown]
  - Meningomyelocele [Unknown]
  - Foetal exposure during pregnancy [Unknown]
  - Hydrops foetalis [Unknown]

NARRATIVE: CASE EVENT DATE: 20240605
